FAERS Safety Report 15645124 (Version 2)
Quarter: 2022Q1

REPORT INFORMATION
  Report Type: Spontaneous
  Country: US (occurrence: US)
  Receive Date: 20181121
  Receipt Date: 20220116
  Transmission Date: 20220423
  Serious: Yes (Other)
  Sender: FDA-Public Use
  Company Number: US-DSJP-DSU-2016-139432

PATIENT
  Sex: Female
  Weight: 97.959 kg

DRUGS (5)
  1. BENICAR [Suspect]
     Active Substance: OLMESARTAN MEDOXOMIL
     Indication: Hypertension
     Dosage: 5 MG, THREE OR FOUR TIMES DAILY
     Route: 048
  2. BENICAR [Suspect]
     Active Substance: OLMESARTAN MEDOXOMIL
     Dosage: 20 MG, QD
     Route: 048
     Dates: start: 2011, end: 20161119
  3. BENICAR [Suspect]
     Active Substance: OLMESARTAN MEDOXOMIL
     Dosage: 20 MG, QD
     Route: 048
     Dates: start: 201611
  4. BENICAR [Suspect]
     Active Substance: OLMESARTAN MEDOXOMIL
     Dosage: 5 MG, QID
     Route: 048
  5. OLMESARTAN MEDOXOMIL [Suspect]
     Active Substance: OLMESARTAN MEDOXOMIL
     Indication: Hypertension
     Dosage: UNK
     Route: 065

REACTIONS (18)
  - Fall [Recovered/Resolved]
  - Loss of consciousness [Recovered/Resolved]
  - Contusion [Unknown]
  - Vision blurred [Unknown]
  - Heart rate increased [Unknown]
  - Limb discomfort [Unknown]
  - Gait disturbance [Unknown]
  - Syncope [Unknown]
  - Pain in extremity [Unknown]
  - Palpitations [Unknown]
  - Arrhythmia [Unknown]
  - Cardiac disorder [Unknown]
  - Peripheral swelling [Not Recovered/Not Resolved]
  - Dizziness [Unknown]
  - Treatment noncompliance [Unknown]
  - Diarrhoea [Not Recovered/Not Resolved]
  - Hypertension [Not Recovered/Not Resolved]
  - Off label use [Not Recovered/Not Resolved]

NARRATIVE: CASE EVENT DATE: 20150101
